FAERS Safety Report 5797715-X (Version None)
Quarter: 2008Q3

REPORT INFORMATION
  Report Type: 
  Country: None (occurrence: None)
  Receive Date: 20080702
  Receipt Date: 20080620
  Transmission Date: 20090109
  Serious: Yes (Hospitalization)
  Sender: FDA-Public Use
  Company Number: FR-BRISTOL-MYERS SQUIBB COMPANY-14246458

PATIENT
  Age: 75 Year
  Sex: Male

DRUGS (25)
  1. GLUCOPHAGE [Suspect]
     Route: 048
     Dates: end: 20080513
  2. TARGOCID [Suspect]
     Route: 042
     Dates: start: 20080424, end: 20080513
  3. NEURONTIN [Suspect]
     Route: 048
     Dates: end: 20080513
  4. AMARYL [Suspect]
     Route: 048
     Dates: end: 20080313
  5. PERINDOPRIL ERBUMINE [Suspect]
     Route: 048
     Dates: end: 20080513
  6. LASIX [Concomitant]
     Route: 048
  7. ATENOLOL [Concomitant]
     Dosage: 1 DOSAGE FORM = 1/2 DOSAGE FORM  50MG TABLET IN THE EVENING,STRENGTH- 50 MG
     Route: 048
  8. ELISOR [Concomitant]
     Dosage: STRENGTH- 20 MG, 1 DOSAGE FORM IN THE EVENING
     Route: 048
  9. ASPIRIN [Concomitant]
     Dosage: 160 MG
     Route: 048
  10. AMLOR [Concomitant]
     Dosage: 5 MG
     Route: 048
  11. CORVASAL [Concomitant]
     Route: 048
  12. ACETAMINOPHEN [Concomitant]
     Dosage: 500
     Route: 048
  13. NICOBION [Concomitant]
     Dosage: STRENGTH- 500 MG
     Route: 048
  14. PLAVIX [Concomitant]
     Dosage: STRENGTH- 75 MG
     Route: 048
  15. IMOVANE [Concomitant]
     Indication: INSOMNIA
     Dosage: STRENGTH- 7.5 MG
     Route: 048
  16. FORLAX [Concomitant]
     Route: 048
  17. CLONAZEPAM [Concomitant]
     Dosage: 2.5 MG
  18. FERROGRAD [Concomitant]
     Dosage: 500 MG
  19. VITAMIN B COMPLEX CAP [Concomitant]
     Route: 048
  20. PANTOPRAZOLE SODIUM [Concomitant]
  21. EFFEXOR [Concomitant]
  22. MOTILIUM [Concomitant]
     Route: 048
  23. LOVENOX [Concomitant]
  24. HYDROCORTISONE [Concomitant]
  25. RIFAMPICIN [Concomitant]
     Dates: start: 20080424

REACTIONS (2)
  - RENAL FAILURE ACUTE [None]
  - VOMITING [None]
